FAERS Safety Report 24822392 (Version 2)
Quarter: 2025Q2

REPORT INFORMATION
  Report Type: Report from Study
  Country: GB (occurrence: GB)
  Receive Date: 20250108
  Receipt Date: 20250529
  Transmission Date: 20250716
  Serious: Yes (Other)
  Sender: ALEXION PHARMACEUTICALS
  Company Number: GB-AstraZeneca-CH-00777902A

PATIENT
  Age: 70 Year

DRUGS (1)
  1. ULTOMIRIS [Suspect]
     Active Substance: RAVULIZUMAB-CWVZ
     Indication: Paroxysmal nocturnal haemoglobinuria

REACTIONS (5)
  - Lower respiratory tract infection [Recovered/Resolved]
  - Mouth haemorrhage [Not Recovered/Not Resolved]
  - Ulcer [Not Recovered/Not Resolved]
  - Insomnia [Unknown]
  - Fatigue [Unknown]
